FAERS Safety Report 8410026 (Version 8)
Quarter: 2013Q1

REPORT INFORMATION
  Report Type: Spontaneous
  Country: US (occurrence: US)
  Receive Date: 20120216
  Receipt Date: 20130326
  Transmission Date: 20140127
  Serious: Yes (Disabling, Other)
  Sender: FDA-Public Use
  Company Number: US-009507513-1202USA02280

PATIENT
  Sex: Female
  Weight: 65.77 kg

DRUGS (7)
  1. FOSAMAX [Suspect]
     Dosage: 70 MG, QW
     Route: 048
     Dates: start: 200011, end: 20021119
  2. FOSAMAX [Suspect]
     Dosage: 35 MG, QW
     Route: 048
     Dates: start: 20001120, end: 200411
  3. FOSAMAX [Suspect]
     Dosage: 70 MG, QW
     Route: 048
     Dates: start: 200411, end: 200610
  4. ACTONEL [Suspect]
     Indication: OSTEOPENIA
     Dosage: 35 MG, UNK
     Route: 048
     Dates: start: 200801, end: 201003
  5. ACTONEL [Suspect]
     Indication: OSTEOPENIA
     Dosage: 150 MG, UNK
     Route: 048
     Dates: start: 200808, end: 200809
  6. MK-9278 [Concomitant]
     Dates: start: 1990
  7. CALCIUM (UNSPECIFIED) [Concomitant]
     Dates: start: 1990

REACTIONS (73)
  - Femur fracture [Unknown]
  - Endometrial hyperplasia [Unknown]
  - Metaplasia [Not Recovered/Not Resolved]
  - Adenomyosis [Unknown]
  - Leiomyoma [Unknown]
  - Cervicitis [Not Recovered/Not Resolved]
  - Femur fracture [Unknown]
  - Low turnover osteopathy [Unknown]
  - Gingival disorder [Unknown]
  - Tooth disorder [Unknown]
  - Foot fracture [Unknown]
  - Foot fracture [Unknown]
  - Foot fracture [Unknown]
  - Foot fracture [Unknown]
  - Impaired healing [Unknown]
  - Impaired healing [Unknown]
  - Impaired healing [Unknown]
  - Fracture nonunion [Unknown]
  - Adverse event [Unknown]
  - Adverse event [Unknown]
  - Multiple fractures [Unknown]
  - Foot fracture [Unknown]
  - Radiculopathy [Unknown]
  - Sciatica [Unknown]
  - Tendonitis [Unknown]
  - Thyroid neoplasm [Unknown]
  - Autoimmune thyroiditis [Not Recovered/Not Resolved]
  - Morton^s neuroma [Unknown]
  - Skin disorder [Unknown]
  - Vaginal disorder [Unknown]
  - Dyspareunia [Unknown]
  - Coital bleeding [Unknown]
  - Aortic valve incompetence [Unknown]
  - Cystitis [Unknown]
  - Dermatitis [Unknown]
  - Cyst rupture [Unknown]
  - Goitre [Unknown]
  - Herpes zoster [Unknown]
  - Nodule [Unknown]
  - Osteoarthritis [Unknown]
  - Fall [Unknown]
  - Bursitis [Unknown]
  - Gait disturbance [Unknown]
  - Intervertebral disc protrusion [Unknown]
  - Haematuria [Unknown]
  - Adenoma benign [Unknown]
  - Adverse drug reaction [Unknown]
  - Foot fracture [Unknown]
  - Large intestine polyp [Unknown]
  - Glucose tolerance impaired [Unknown]
  - Foot fracture [Unknown]
  - Hypercholesterolaemia [Unknown]
  - Allergy to animal [Unknown]
  - Food allergy [Unknown]
  - Fracture delayed union [Unknown]
  - Foot deformity [Unknown]
  - Postmenopausal haemorrhage [Unknown]
  - Anaemia [Unknown]
  - Oedema [Unknown]
  - Vaginal disorder [Unknown]
  - Vulvovaginal dryness [Unknown]
  - Muscle strain [Unknown]
  - Fatigue [Unknown]
  - Contusion [Unknown]
  - Ligament sprain [Unknown]
  - Hypothyroidism [Unknown]
  - Hypoparathyroidism [Unknown]
  - Drug hypersensitivity [Unknown]
  - Pruritus [Unknown]
  - Dysphagia [Unknown]
  - Myalgia [Unknown]
  - Drug hypersensitivity [Unknown]
  - Hypersensitivity [Unknown]
